FAERS Safety Report 7753625-X (Version None)
Quarter: 2011Q3

REPORT INFORMATION
  Report Type: 
  Country: None (occurrence: None)
  Receive Date: 20110915
  Receipt Date: 20110912
  Transmission Date: 20111222
  Serious: Yes (Death)
  Sender: FDA-Public Use
  Company Number: SG-GLAXOSMITHKLINE-B0743731A

PATIENT

DRUGS (1)
  1. PAZOPANIB [Suspect]
     Indication: NASOPHARYNGEAL CANCER
     Dosage: 800MG PER DAY
     Route: 048

REACTIONS (1)
  - EPISTAXIS [None]
